FAERS Safety Report 5332872-0 (Version None)
Quarter: 2007Q2

REPORT INFORMATION
  Report Type: 
  Country: None (occurrence: None)
  Receive Date: 20070521
  Receipt Date: 20070503
  Transmission Date: 20071010
  Serious: Yes (Other)
  Sender: FDA-Public Use
  Company Number: 16421

PATIENT
  Age: 32 Year
  Sex: Female
  Weight: 68 kg

DRUGS (9)
  1. EPHEDRINE SUL CAP [Suspect]
     Indication: BLOOD PRESSURE DECREASED
     Dosage: 6 MG PU
  2. MIDAZOLAM HCL [Suspect]
     Indication: SEDATIVE THERAPY
     Dosage: 1 MG IV
     Route: 042
  3. PETHIDINE [Suspect]
     Indication: DRUG USE FOR UNKNOWN INDICATION
     Dosage: 40 MG EP
     Route: 008
  4. PETHIDINE [Suspect]
     Indication: POSTOPERATIVE ANALGESIA
     Dosage: 40 MG EP
     Route: 008
  5. PETHIDINE [Suspect]
     Indication: DRUG USE FOR UNKNOWN INDICATION
  6. PETHIDINE [Suspect]
     Indication: POSTOPERATIVE ANALGESIA
  7. ROPIVACAINE [Concomitant]
  8. FLUMAZENIL [Concomitant]
  9. NALOXONE [Concomitant]

REACTIONS (18)
  - ADVERSE DRUG REACTION [None]
  - ALTERED STATE OF CONSCIOUSNESS [None]
  - BLEPHAROSPASM [None]
  - BLOOD PRESSURE SYSTOLIC DECREASED [None]
  - BRADYKINESIA [None]
  - CAESAREAN SECTION [None]
  - CONVERSION DISORDER [None]
  - COORDINATION ABNORMAL [None]
  - DRUG EXPOSURE DURING PREGNANCY [None]
  - DYSARTHRIA [None]
  - EYELID FUNCTION DISORDER [None]
  - FALL [None]
  - FEMUR FRACTURE [None]
  - HUMERUS FRACTURE [None]
  - LOSS OF CONSCIOUSNESS [None]
  - MIOSIS [None]
  - PROCEDURAL COMPLICATION [None]
  - UNRESPONSIVE TO STIMULI [None]
